FAERS Safety Report 10927235 (Version 1)
Quarter: 2015Q1

REPORT INFORMATION
  Report Type: Spontaneous
  Country: US (occurrence: None)
  Receive Date: 20150316
  Receipt Date: 20150316
  Transmission Date: 20150721
  Serious: Yes (Other)
  Sender: FDA-Public Use
  Company Number: 8015246

PATIENT
  Age: 36 Year
  Sex: Female

DRUGS (3)
  1. BETAMETHASONE (BETAMETHASONE) [Concomitant]
  2. PROPYLTHIOURACIL (PROPHYLTHIOURACIL) [Concomitant]
  3. LEVOTHYROXINE (LEVOTHYROXINE) [Suspect]
     Active Substance: LEVOTHYROXINE
     Indication: POST PROCEDURAL HYPOTHYROIDISM

REACTIONS (6)
  - Premature rupture of membranes [None]
  - Premature delivery [None]
  - Corneal abrasion [None]
  - Maternal exposure during pregnancy [None]
  - Thyroid stimulating immunoglobulin increased [None]
  - Exophthalmos [None]
